FAERS Safety Report 5951792-1 (Version None)
Quarter: 2008Q4

REPORT INFORMATION
  Report Type: 
  Country: None (occurrence: None)
  Receive Date: 20081113
  Receipt Date: 20081106
  Transmission Date: 20090506
  Serious: Yes (Hospitalization, Congenital Anomaly)
  Sender: FDA-Public Use
  Company Number: A0723676A

PATIENT
  Sex: Female

DRUGS (10)
  1. PAXIL CR [Suspect]
     Indication: DEPRESSION
     Dosage: 12.5MG PER DAY
     Dates: start: 20060412
  2. PAXIL [Suspect]
     Indication: POSTPARTUM DEPRESSION
     Dosage: 10MG PER DAY
     Dates: start: 20040801
  3. PAROXETINE HCL [Suspect]
     Indication: DEPRESSION
     Dosage: 10MG PER DAY
     Dates: start: 20060203, end: 20060403
  4. VITAMIN TAB [Concomitant]
     Indication: PREGNANCY
  5. GLYBURIDE [Concomitant]
     Dosage: 2.5MG PER DAY
     Dates: start: 20051101, end: 20061201
  6. METFORMIN HCL [Concomitant]
     Dosage: 1500MG TWICE PER DAY
     Dates: start: 20051101, end: 20061201
  7. ACTOS [Concomitant]
     Dosage: 15MG PER DAY
     Dates: start: 20060101
  8. ZOLOFT [Concomitant]
     Indication: DEPRESSION
     Dosage: 50MG PER DAY
     Dates: start: 20060201
  9. LANTUS [Concomitant]
     Dosage: 10UD AT NIGHT
     Dates: start: 20060501
  10. SUDAFED 12 HOUR [Concomitant]

REACTIONS (6)
  - ATRIAL SEPTAL DEFECT [None]
  - CONGENITAL ANOMALY [None]
  - DRUG EXPOSURE DURING PREGNANCY [None]
  - PATENT DUCTUS ARTERIOSUS [None]
  - PULMONARY HYPERTENSION [None]
  - RESPIRATORY FAILURE [None]
